FAERS Safety Report 23215674 (Version 1)
Quarter: 2023Q4

REPORT INFORMATION
  Report Type: Spontaneous
  Country: US (occurrence: US)
  Receive Date: 20231122
  Receipt Date: 20231122
  Transmission Date: 20240109
  Serious: No
  Sender: FDA-Public Use
  Company Number: US-ELI_LILLY_AND_COMPANY-US202311011990

PATIENT
  Age: 48 Year
  Sex: Female

DRUGS (1)
  1. MOUNJARO [Suspect]
     Active Substance: TIRZEPATIDE
     Indication: Weight decreased
     Dosage: 2.5 MG, WEEKLY (1/W)
     Route: 065
     Dates: start: 202311

REACTIONS (4)
  - Accidental underdose [Unknown]
  - Off label use [Unknown]
  - Injection site pain [Recovered/Resolved]
  - Injection site coldness [Recovered/Resolved]

NARRATIVE: CASE EVENT DATE: 20231101
